FAERS Safety Report 8021217-3 (Version None)
Quarter: 2012Q1

REPORT INFORMATION
  Report Type: 
  Country: None (occurrence: None)
  Receive Date: 20120104
  Receipt Date: 20111229
  Transmission Date: 20120608
  Serious: No
  Sender: FDA-Public Use
  Company Number: US-TEVA-315656USA

PATIENT
  Sex: Female
  Weight: 74.91 kg

DRUGS (2)
  1. PLAN B ONE-STEP [Suspect]
     Indication: POST COITAL CONTRACEPTION
     Dosage: 1.5 MILLIGRAM;
     Route: 048
     Dates: start: 20111124, end: 20111124
  2. PLAN B ONE-STEP [Suspect]
     Dosage: 1.5 MILLIGRAM;
     Route: 048
     Dates: start: 20111217, end: 20111217

REACTIONS (3)
  - BREAST TENDERNESS [None]
  - ABDOMINAL PAIN [None]
  - MENSTRUATION IRREGULAR [None]
